FAERS Safety Report 6890474-9 (Version None)
Quarter: 2010Q3

REPORT INFORMATION
  Report Type: 
  Country: None (occurrence: None)
  Receive Date: 20100731
  Receipt Date: 20081107
  Transmission Date: 20110219
  Serious: No
  Sender: FDA-Public Use
  Company Number: US-PFIZER INC-2008094959

PATIENT
  Age: 84 Year
  Sex: Female

DRUGS (5)
  1. LIPITOR [Suspect]
     Indication: BLOOD CHOLESTEROL INCREASED
  2. HYDROCHLOROTHIAZIDE [Concomitant]
  3. FOSAMAX [Concomitant]
  4. SYNTHROID [Concomitant]
  5. DRUG, UNSPECIFIED [Concomitant]

REACTIONS (1)
  - SWELLING [None]
